FAERS Safety Report 11767368 (Version 1)
Quarter: 2015Q4

REPORT INFORMATION
  Report Type: Spontaneous
  Country: US (occurrence: US)
  Receive Date: 20151123
  Receipt Date: 20151123
  Transmission Date: 20160304
  Serious: No
  Sender: FDA-Public Use
  Company Number: US-PFIZER INC-2015398690

PATIENT
  Sex: Male

DRUGS (2)
  1. XANAX [Suspect]
     Active Substance: ALPRAZOLAM
     Indication: STRESS
     Dosage: 0.25 MG, 3 OR 4 TIMES A DAY
     Route: 048
     Dates: start: 2002
  2. XANAX [Suspect]
     Active Substance: ALPRAZOLAM
     Indication: ANXIETY

REACTIONS (5)
  - Emotional disorder [Unknown]
  - Impulsive behaviour [Unknown]
  - Personality change [Unknown]
  - Anger [Not Recovered/Not Resolved]
  - Irritability [Unknown]
